FAERS Safety Report 12257547 (Version 1)
Quarter: 2016Q2

REPORT INFORMATION
  Report Type: Report from Study
  Country: SD (occurrence: SD)
  Receive Date: 20160412
  Receipt Date: 20160412
  Transmission Date: 20160815
  Serious: Yes (Other)
  Sender: FDA-Public Use
  Company Number: PHHY2016SD046549

PATIENT
  Age: 43 Year
  Sex: Male

DRUGS (1)
  1. GLIVEC [Suspect]
     Active Substance: IMATINIB MESYLATE
     Indication: GASTROINTESTINAL STROMAL TUMOUR
     Dosage: 400 MG, DAILY
     Route: 065
     Dates: start: 200703

REACTIONS (7)
  - Hydronephrosis [Unknown]
  - Pleural effusion [Unknown]
  - Abdominal pain [Unknown]
  - Abdominal distension [Unknown]
  - Pelvic mass [Unknown]
  - Abdominal mass [Unknown]
  - Ascites [Unknown]

NARRATIVE: CASE EVENT DATE: 201512
